FAERS Safety Report 16286706 (Version 2)
Quarter: 2019Q2

REPORT INFORMATION
  Report Type: Spontaneous
  Country: JP (occurrence: JP)
  Receive Date: 20190508
  Receipt Date: 20190529
  Transmission Date: 20190711
  Serious: Yes (Hospitalization)
  Sender: FDA-Public Use
  Company Number: JP-ELI_LILLY_AND_COMPANY-JP201905001972

PATIENT
  Age: 57 Year
  Sex: Female

DRUGS (4)
  1. SUGLAT [Suspect]
     Active Substance: IPRAGLIFLOZIN L-PROLINE
     Indication: PRODUCT USED FOR UNKNOWN INDICATION
     Dosage: UNK
     Route: 065
     Dates: end: 20190421
  2. TRULICITY [Suspect]
     Active Substance: DULAGLUTIDE
     Indication: TYPE 1 DIABETES MELLITUS
     Dosage: UNK
     Route: 058
     Dates: start: 201810, end: 20190320
  3. APIDRA [Concomitant]
     Active Substance: INSULIN GLULISINE
  4. TRESIBA [Concomitant]
     Active Substance: INSULIN DEGLUDEC

REACTIONS (2)
  - Diabetic ketoacidosis [Recovered/Resolved]
  - Off label use [Recovered/Resolved]

NARRATIVE: CASE EVENT DATE: 201810
